FAERS Safety Report 10160995 (Version 1)
Quarter: 2014Q2

REPORT INFORMATION
  Report Type: Spontaneous
  Country: US (occurrence: US)
  Receive Date: 20140508
  Receipt Date: 20140508
  Transmission Date: 20141212
  Serious: No
  Sender: FDA-Public Use
  Company Number: US-PFIZER INC-2014124122

PATIENT
  Age: 58 Year
  Sex: Male

DRUGS (1)
  1. ATORVASTATIN CALCIUM [Suspect]
     Dosage: UNKNOWN DOSE DAILY
     Dates: start: 2013

REACTIONS (2)
  - Muscle spasms [Recovered/Resolved]
  - Limb discomfort [Recovered/Resolved]
